FAERS Safety Report 6957637-5 (Version None)
Quarter: 2010Q3

REPORT INFORMATION
  Report Type: 
  Country: None (occurrence: None)
  Receive Date: 20100831
  Receipt Date: 20100818
  Transmission Date: 20110219
  Serious: Yes (Death, Life-Threatening, Hospitalization, Other)
  Sender: FDA-Public Use
  Company Number: US-ELI_LILLY_AND_COMPANY-US201008005787

PATIENT
  Sex: Female

DRUGS (16)
  1. CYMBALTA [Suspect]
     Dosage: 60 MG, 2/D
  2. NUVIGIL [Concomitant]
     Indication: SLEEP DISORDER
     Dosage: 250 MG, UNK
     Route: 048
     Dates: start: 20100217
  3. ULTRAM [Concomitant]
  4. LORTAB [Concomitant]
  5. XANAX [Concomitant]
     Dosage: 0.5 MG, UNK
  6. RELPAX [Concomitant]
  7. IMITREX [Concomitant]
     Route: 048
  8. IMITREX [Concomitant]
     Route: 058
  9. PROVIGIL [Concomitant]
     Indication: SLEEP DISORDER
  10. TRAZODONE HCL [Concomitant]
  11. SYNTHROID [Concomitant]
  12. INDERAL [Concomitant]
     Indication: TREMOR
  13. ANAPROX [Concomitant]
  14. CLONAZEPAM [Concomitant]
  15. DARVOCET [Concomitant]
  16. TEMAZEPAM [Concomitant]

REACTIONS (20)
  - ANAEMIA [None]
  - BRAIN DEATH [None]
  - BRAIN HERNIATION [None]
  - CONVULSION [None]
  - ENCEPHALOPATHY [None]
  - INSOMNIA [None]
  - LIVER DISORDER [None]
  - METABOLIC ACIDOSIS [None]
  - MIGRAINE [None]
  - NAUSEA [None]
  - RENAL FAILURE ACUTE [None]
  - RESPIRATORY DEPRESSION [None]
  - RESPIRATORY FAILURE [None]
  - RETCHING [None]
  - RHABDOMYOLYSIS [None]
  - SEROTONIN SYNDROME [None]
  - SOMNAMBULISM [None]
  - STATUS EPILEPTICUS [None]
  - UNRESPONSIVE TO STIMULI [None]
  - VOMITING [None]
